FAERS Safety Report 6455772-1 (Version None)
Quarter: 2009Q4

REPORT INFORMATION
  Report Type: 
  Country: None (occurrence: None)
  Receive Date: 20091125
  Receipt Date: 20091103
  Transmission Date: 20100525
  Serious: No
  Sender: FDA-Public Use
  Company Number: US-ABBOTT-09P-163-0606672-00

PATIENT
  Sex: Male
  Weight: 127.12 kg

DRUGS (4)
  1. SIMCOR [Suspect]
     Indication: DRUG USE FOR UNKNOWN INDICATION
     Dosage: 500/20 MG DAILY
     Route: 048
     Dates: start: 20091023
  2. ASPIRIN [Concomitant]
     Indication: DRUG USE FOR UNKNOWN INDICATION
     Dosage: DAILY
     Route: 048
  3. ACCURETIC [Concomitant]
     Indication: DRUG USE FOR UNKNOWN INDICATION
  4. GLUCOSAMINE + CHONDROITIN [Concomitant]
     Indication: DRUG USE FOR UNKNOWN INDICATION
     Dosage: DAILY (OTC DOSE NOT REPORTED)
     Route: 048

REACTIONS (1)
  - FLUSHING [None]
